FAERS Safety Report 6249880-8 (Version None)
Quarter: 2009Q2

REPORT INFORMATION
  Report Type: 
  Country: None (occurrence: None)
  Receive Date: 20090629
  Receipt Date: 20090629
  Transmission Date: 20091009
  Serious: Yes (Other)
  Sender: FDA-Public Use
  Company Number: US-PFIZER INC-2004082935

PATIENT
  Sex: Female

DRUGS (15)
  1. DILANTIN [Suspect]
     Indication: CONVULSION
     Route: 048
     Dates: start: 19740101
  2. OGEN [Suspect]
  3. ARTHROTEC [Suspect]
     Indication: ARTHRITIS
  4. ACCUPRIL [Suspect]
     Indication: HYPERTENSION
  5. RABEPRAZOLE SODIUM [Concomitant]
     Route: 048
  6. ESTROGENS CONJUGATED [Concomitant]
     Route: 048
  7. MOMETASONE FUROATE [Concomitant]
     Route: 045
  8. FLUTICASONE [Concomitant]
     Route: 045
  9. DESLORATADINE [Concomitant]
     Route: 048
  10. PRIMIDONE [Concomitant]
     Dosage: UNK
     Route: 048
  11. MISOPROSTOL, DICLOFENAC SODIUM [Concomitant]
     Route: 048
  12. NASONEX [Concomitant]
  13. CLARITIN [Concomitant]
  14. CLARINEX [Concomitant]
  15. PREMARIN [Concomitant]

REACTIONS (3)
  - BLINDNESS [None]
  - CORNEAL DYSTROPHY [None]
  - CORNEAL OEDEMA [None]
